FAERS Safety Report 5868052-X (Version None)
Quarter: 2008Q3

REPORT INFORMATION
  Report Type: 
  Country: None (occurrence: None)
  Receive Date: 20080902
  Receipt Date: 20080825
  Transmission Date: 20090109
  Serious: Yes (Hospitalization)
  Sender: FDA-Public Use
  Company Number: FR-ASTRAZENECA-2008CG01254

PATIENT
  Age: 16633 Day
  Sex: Male

DRUGS (3)
  1. FOSCAVIR [Suspect]
     Indication: ENCEPHALITIS CYTOMEGALOVIRUS
     Route: 042
     Dates: start: 20080428, end: 20080509
  2. CYMEVAN [Suspect]
     Indication: ENCEPHALITIS CYTOMEGALOVIRUS
     Route: 042
     Dates: start: 20080428, end: 20080509
  3. WELLVONE [Concomitant]

REACTIONS (1)
  - CYTOLYTIC HEPATITIS [None]
